FAERS Safety Report 7810970-7 (Version None)
Quarter: 2011Q4

REPORT INFORMATION
  Report Type: 
  Country: None (occurrence: None)
  Receive Date: 20111012
  Receipt Date: 20111012
  Transmission Date: 20120403
  Serious: No
  Sender: FDA-Public Use
  Company Number: None

PATIENT
  Age: 61 Year
  Sex: Male

DRUGS (12)
  1. REVLIMID [Suspect]
     Indication: MULTIPLE MYELOMA
     Dosage: 25MG QDX21D/28D ORALLY
     Route: 048
     Dates: start: 20100701, end: 20111001
  2. EFFIENT [Concomitant]
  3. QVAR 40 [Concomitant]
  4. TENORMIN [Concomitant]
  5. PROTONIX [Concomitant]
  6. NORCO [Concomitant]
  7. PROAIR HFA [Concomitant]
  8. DECADRON [Concomitant]
  9. NITROSTAT [Concomitant]
  10. ASPIRIN [Concomitant]
  11. ZESTRIL [Concomitant]
  12. ZOCOR [Concomitant]

REACTIONS (2)
  - BLOOD CREATININE INCREASED [None]
  - CREATININE RENAL CLEARANCE DECREASED [None]
